FAERS Safety Report 15416292 (Version 2)
Quarter: 2019Q1

REPORT INFORMATION
  Report Type: Report from Study
  Country: BR (occurrence: BR)
  Receive Date: 20180923
  Receipt Date: 20190325
  Transmission Date: 20190417
  Serious: Yes (Disabling, Other)
  Sender: FDA-Public Use
  Company Number: BR-BRISTOL-MYERS SQUIBB COMPANY-BMS-2018-012653

PATIENT
  Age: 64 Year
  Sex: Female

DRUGS (1)
  1. ABATACEPT [Suspect]
     Active Substance: ABATACEPT
     Indication: RHEUMATOID ARTHRITIS
     Dosage: UNK, QMO
     Route: 042

REACTIONS (10)
  - Femur fracture [Recovered/Resolved]
  - Bone disorder [Unknown]
  - Glaucoma [Unknown]
  - Tibia fracture [Recovered/Resolved]
  - Fall [Unknown]
  - Weight increased [Unknown]
  - Pain [Unknown]
  - Blindness [Unknown]
  - Hip fracture [Recovered/Resolved]
  - Drug ineffective [Unknown]

NARRATIVE: CASE EVENT DATE: 20180607
